FAERS Safety Report 9983178 (Version 12)
Quarter: 2016Q1

REPORT INFORMATION
  Report Type: Report from Study
  Country: FR (occurrence: FR)
  Receive Date: 20140307
  Receipt Date: 20160205
  Transmission Date: 20160526
  Serious: Yes (Hospitalization, Other)
  Sender: FDA-Public Use
  Company Number: PHHY2014FR026858

PATIENT
  Age: 82 Year
  Sex: Male

DRUGS (10)
  1. DAFALGAN [Concomitant]
     Active Substance: ACETAMINOPHEN
     Indication: PRODUCT USED FOR UNKNOWN INDICATION
     Route: 065
  2. EXJADE [Suspect]
     Active Substance: DEFERASIROX
     Indication: MYELODYSPLASTIC SYNDROME
     Dosage: 500 MG, QD
     Route: 048
     Dates: start: 20130919, end: 20131009
  3. ALLOPURINOL. [Concomitant]
     Active Substance: ALLOPURINOL
     Indication: PRODUCT USED FOR UNKNOWN INDICATION
     Dosage: 1 DF, QD
     Route: 065
  4. EXJADE [Suspect]
     Active Substance: DEFERASIROX
     Dosage: 1250 MG, QD
     Route: 048
     Dates: start: 20131031, end: 20140131
  5. CORTANCYL [Concomitant]
     Active Substance: PREDNISONE
     Indication: RHEUMATOID ARTHRITIS
     Dosage: 20 MG, QD
     Route: 065
     Dates: start: 201206
  6. EXJADE [Suspect]
     Active Substance: DEFERASIROX
     Dosage: 750 MG, QD
     Route: 048
     Dates: start: 20131010, end: 20131030
  7. FUROSEMIDE. [Concomitant]
     Active Substance: FUROSEMIDE
     Indication: PRODUCT USED FOR UNKNOWN INDICATION
     Dosage: 40 MG, QD
     Route: 065
  8. LASILIX [Concomitant]
     Active Substance: FUROSEMIDE
     Indication: PRODUCT USED FOR UNKNOWN INDICATION
     Route: 065
  9. FORLAX [Concomitant]
     Active Substance: POLYETHYLENE GLYCOL 4000
     Indication: PRODUCT USED FOR UNKNOWN INDICATION
     Route: 065
  10. BISOPROLOL [Concomitant]
     Active Substance: BISOPROLOL
     Indication: HYPERTENSION
     Dosage: 2.5 MG, QD
     Route: 065
     Dates: start: 20140201

REACTIONS (27)
  - Lymphangitis [Unknown]
  - Jugular vein distension [Unknown]
  - Ventricular dysfunction [Unknown]
  - Heart sounds abnormal [Unknown]
  - Heart rate increased [Unknown]
  - Blood creatinine increased [Recovered/Resolved]
  - Purulence [Unknown]
  - Haematoma [Not Recovered/Not Resolved]
  - Arthritis bacterial [Unknown]
  - Joint range of motion decreased [Unknown]
  - Aortic dilatation [Unknown]
  - Crepitations [Unknown]
  - Mitral valve incompetence [Unknown]
  - Gastrointestinal motility disorder [Unknown]
  - Atrial fibrillation [Not Recovered/Not Resolved]
  - Oedema peripheral [Not Recovered/Not Resolved]
  - Intestinal obstruction [Recovered/Resolved]
  - Wound [Unknown]
  - Dyspnoea [Unknown]
  - Cardiomegaly [Unknown]
  - Pyrexia [Unknown]
  - Chronic respiratory failure [Not Recovered/Not Resolved]
  - Flatulence [Unknown]
  - Skin swelling [Unknown]
  - Wound infection staphylococcal [Unknown]
  - Back pain [Recovered/Resolved]
  - Skin necrosis [Not Recovered/Not Resolved]

NARRATIVE: CASE EVENT DATE: 201312
